FAERS Safety Report 5165584-7 (Version None)
Quarter: 2006Q4

REPORT INFORMATION
  Report Type: 
  Country: None (occurrence: None)
  Receive Date: 20061206
  Receipt Date: 20061127
  Transmission Date: 20070319
  Serious: Yes (Other)
  Sender: FDA-Public Use
  Company Number: JP-GLAXOSMITHKLINE-B0448635A

PATIENT
  Age: 65 Year
  Sex: Male
  Weight: 49 kg

DRUGS (22)
  1. ALKERAN [Suspect]
     Indication: STEM CELL TRANSPLANT
     Dosage: 100MG PER DAY
     Route: 042
     Dates: start: 20060515, end: 20060516
  2. GRAN [Concomitant]
     Route: 042
     Dates: start: 20060522, end: 20060528
  3. OZEX [Concomitant]
     Route: 048
     Dates: start: 20060511, end: 20060615
  4. SLOW-K [Concomitant]
     Route: 048
     Dates: start: 20060428
  5. BENET [Concomitant]
     Route: 048
     Dates: start: 20060428
  6. OMEPRAZOLE [Concomitant]
     Route: 048
     Dates: start: 20060428
  7. DIFLUCAN [Concomitant]
     Route: 048
     Dates: start: 20060511, end: 20060614
  8. GASTER D [Concomitant]
     Route: 048
     Dates: start: 20060531, end: 20060607
  9. UNKNOWN DRUG [Concomitant]
     Route: 048
     Dates: start: 20060428, end: 20060524
  10. BACTRIM [Concomitant]
     Route: 048
     Dates: start: 20060511, end: 20060516
  11. MAGNESIUM OXIDE [Concomitant]
     Route: 048
     Dates: start: 20060519, end: 20060524
  12. SOL-MELCORT [Concomitant]
     Route: 042
     Dates: start: 20060518, end: 20060518
  13. CHLOR-TRIMETON [Concomitant]
     Dates: start: 20060518, end: 20060518
  14. NASEA [Concomitant]
     Dates: start: 20060515, end: 20060516
  15. UNKNOWN DRUG [Concomitant]
     Route: 042
     Dates: start: 20060518, end: 20060519
  16. P N TWIN [Concomitant]
     Route: 042
     Dates: start: 20060519, end: 20060530
  17. MAXIPIME [Concomitant]
     Route: 042
     Dates: start: 20060523, end: 20060525
  18. CARBENIN [Concomitant]
     Route: 042
     Dates: start: 20060526, end: 20060530
  19. VANCOMYCIN [Concomitant]
     Route: 042
     Dates: start: 20060526, end: 20060530
  20. FUNGUARD [Concomitant]
     Route: 042
     Dates: start: 20060524, end: 20060530
  21. OMEPRAL [Concomitant]
     Dates: start: 20060526, end: 20060531
  22. VALTREX [Concomitant]
     Route: 048
     Dates: start: 20060703, end: 20060709

REACTIONS (9)
  - BLISTER [None]
  - BLOOD PRESSURE DECREASED [None]
  - C-REACTIVE PROTEIN INCREASED [None]
  - PAIN [None]
  - PYREXIA [None]
  - RASH [None]
  - SEPTIC SHOCK [None]
  - STOMATITIS [None]
  - VARICELLA [None]
